FAERS Safety Report 10205541 (Version 1)
Quarter: 2014Q2

REPORT INFORMATION
  Report Type: Spontaneous
  Country: ES (occurrence: ES)
  Receive Date: 20140529
  Receipt Date: 20140529
  Transmission Date: 20141212
  Serious: Yes (Other)
  Sender: FDA-Public Use
  Company Number: ES-WATSON-2014-11556

PATIENT
  Age: 48 Year
  Sex: Female

DRUGS (1)
  1. BUPROPION HYDROCHLORIDE (UNKNOWN) [Suspect]
     Indication: DEPRESSION
     Dosage: 150 MG, DAILY
     Route: 065
     Dates: start: 20120309, end: 20120427

REACTIONS (3)
  - Eosinophilia [Recovered/Resolved]
  - Myalgia [Recovered/Resolved]
  - Cough [Recovered/Resolved]
